FAERS Safety Report 21743880 (Version 7)
Quarter: 2024Q4

REPORT INFORMATION
  Report Type: Report from Study
  Country: CA (occurrence: CA)
  Receive Date: 20221217
  Receipt Date: 20241111
  Transmission Date: 20250114
  Serious: Yes (Other)
  Sender: TAKEDA
  Company Number: CA-TAKEDA-2022TUS097624

PATIENT
  Sex: Female
  Weight: 48 kg

DRUGS (16)
  1. HUMAN IMMUNOGLOBULIN G [Suspect]
     Active Substance: HUMAN IMMUNOGLOBULIN G
     Indication: Primary immunodeficiency syndrome
     Dosage: 12 GRAM, 1/WEEK
     Dates: start: 20201204
  2. HUMAN IMMUNOGLOBULIN G [Suspect]
     Active Substance: HUMAN IMMUNOGLOBULIN G
     Indication: Systemic lupus erythematosus
     Dosage: 12 GRAM, 1/WEEK
  3. HUMAN IMMUNOGLOBULIN G [Suspect]
     Active Substance: HUMAN IMMUNOGLOBULIN G
     Indication: Bacterial infection
     Dosage: 12 GRAM, MONTHLY
  4. HUMAN IMMUNOGLOBULIN G [Suspect]
     Active Substance: HUMAN IMMUNOGLOBULIN G
     Indication: Hypogammaglobulinaemia
  5. HUMAN IMMUNOGLOBULIN G [Suspect]
     Active Substance: HUMAN IMMUNOGLOBULIN G
     Indication: Immunodeficiency common variable
  6. HUMAN IMMUNOGLOBULIN G [Suspect]
     Active Substance: HUMAN IMMUNOGLOBULIN G
     Indication: Antibiotic prophylaxis
  7. COVID-19 VACCINE NOS [Suspect]
     Active Substance: COVID-19 VACCINE
     Indication: COVID-19 immunisation
     Dosage: UNK
  8. WARFARIN [Concomitant]
     Active Substance: WARFARIN
     Dosage: 6 MILLIGRAM
  9. AMLODIPINE [Concomitant]
     Active Substance: AMLODIPINE BESYLATE
     Dosage: 2.5 MILLIGRAM
  10. PLAQUENIL [Concomitant]
     Active Substance: HYDROXYCHLOROQUINE SULFATE
     Dosage: 200 MILLIGRAM
  11. CYTOMEL [Concomitant]
     Active Substance: LIOTHYRONINE SODIUM
     Dosage: 5 MICROGRAM
  12. SYNTHROID [Concomitant]
     Active Substance: LEVOTHYROXINE SODIUM
     Dosage: 0.125 MILLIGRAM, QD
  13. RAMIPRIL [Concomitant]
     Active Substance: RAMIPRIL
     Dosage: 10 MILLIGRAM, QD
  14. RITUXAN [Concomitant]
     Active Substance: RITUXIMAB
     Dosage: UNK UNK, Q6MONTHS
  15. PREDNISONE [Concomitant]
     Active Substance: PREDNISONE
     Dosage: UNK
  16. BELIMUMAB [Concomitant]
     Active Substance: BELIMUMAB
     Dosage: UNK UNK, 1/WEEK

REACTIONS (14)
  - Systemic lupus erythematosus [Not Recovered/Not Resolved]
  - Neuropathy peripheral [Recovering/Resolving]
  - Bladder cancer [Unknown]
  - Musculoskeletal stiffness [Unknown]
  - B-lymphocyte count decreased [Unknown]
  - CD8 lymphocytes decreased [Recovering/Resolving]
  - Arthropod bite [Unknown]
  - Skin lesion [Unknown]
  - Gastroenteritis [Unknown]
  - Lipase increased [Unknown]
  - Urinary tract infection [Unknown]
  - Muscular weakness [Unknown]
  - Asthenia [Unknown]
  - Infusion site erythema [Unknown]

NARRATIVE: CASE EVENT DATE: 20230101
